FAERS Safety Report 9831817 (Version 4)
Quarter: 2014Q1

REPORT INFORMATION
  Report Type: Spontaneous
  Country: CA (occurrence: CA)
  Receive Date: 20140121
  Receipt Date: 20140218
  Transmission Date: 20141002
  Serious: Yes (Hospitalization, Disabling)
  Sender: FDA-Public Use
  Company Number: CA-JNJFOC-20140109863

PATIENT
  Age: 63 Year
  Sex: Female

DRUGS (4)
  1. REMICADE [Suspect]
     Indication: CROHN^S DISEASE
     Route: 042
     Dates: start: 2013
  2. REMICADE [Suspect]
     Indication: CROHN^S DISEASE
     Route: 042
     Dates: start: 2013
  3. REMICADE [Suspect]
     Indication: CROHN^S DISEASE
     Dosage: 4TH INFUSION
     Route: 042
  4. REMICADE [Suspect]
     Indication: CROHN^S DISEASE
     Route: 042
     Dates: start: 2013

REACTIONS (5)
  - General physical health deterioration [Unknown]
  - Pneumonia fungal [Unknown]
  - Mouth ulceration [Unknown]
  - Viral infection [Unknown]
  - Crohn^s disease [Unknown]
